FAERS Safety Report 7755766-X (Version None)
Quarter: 2011Q3

REPORT INFORMATION
  Report Type: 
  Country: None (occurrence: None)
  Receive Date: 20110916
  Receipt Date: 20110912
  Transmission Date: 20111222
  Serious: Yes (Death)
  Sender: FDA-Public Use
  Company Number: PHFR2011GB04910

PATIENT
  Age: 16 Year
  Sex: Male

DRUGS (2)
  1. METHYLPHENIDATE [Suspect]
     Dosage: 72 MG, UNK
  2. METHYLPHENIDATE [Suspect]
     Dosage: 36 MG, UNK
     Route: 048

REACTIONS (1)
  - DEATH [None]
